FAERS Safety Report 10025474 (Version 2)
Quarter: 2014Q1

REPORT INFORMATION
  Report Type: Spontaneous
  Country: US (occurrence: US)
  Receive Date: 20140320
  Receipt Date: 20140325
  Transmission Date: 20141002
  Serious: Yes (Other)
  Sender: FDA-Public Use
  Company Number: US-TEVA-469721USA

PATIENT
  Sex: Female
  Weight: 49.94 kg

DRUGS (6)
  1. AZITHROMYCIN [Suspect]
     Indication: MYCOBACTERIUM AVIUM COMPLEX INFECTION
     Dosage: 250 MILLIGRAM DAILY;
     Route: 048
     Dates: start: 201208, end: 201308
  2. RIFAMPIN [Suspect]
     Indication: MYCOBACTERIUM AVIUM COMPLEX INFECTION
     Dosage: 600 MILLIGRAM DAILY;
     Route: 048
     Dates: start: 201208, end: 201308
  3. ETHAMBUTOL [Suspect]
     Indication: MYCOBACTERIUM AVIUM COMPLEX INFECTION
     Dosage: 800 MILLIGRAM DAILY;
     Route: 048
     Dates: start: 201208, end: 201308
  4. CIPRO [Suspect]
  5. XANAX [Concomitant]
     Indication: ANXIETY
  6. TRETINOIN [Concomitant]
     Indication: SKIN DISORDER
     Dosage: 0.1% QHS

REACTIONS (4)
  - Mycobacterium avium complex infection [Not Recovered/Not Resolved]
  - Condition aggravated [Not Recovered/Not Resolved]
  - Drug ineffective [Unknown]
  - Weight decreased [Not Recovered/Not Resolved]
